FAERS Safety Report 15314110 (Version 1)
Quarter: 2018Q3

REPORT INFORMATION
  Report Type: Spontaneous
  Country: GB (occurrence: GB)
  Receive Date: 20180824
  Receipt Date: 20180824
  Transmission Date: 20181010
  Serious: Yes (Other)
  Sender: FDA-Public Use
  Company Number: GB-009507513-2009-199140-NL

PATIENT
  Age: 24 Year
  Sex: Female

DRUGS (4)
  1. IMPLANON [Suspect]
     Active Substance: ETONOGESTREL
     Dosage: IN TOTAL
     Dates: start: 20090618
  2. [COMPOSITION UNSPECIFIED] [Concomitant]
     Active Substance: UNSPECIFIED INGREDIENT
     Dosage: UNK DF, UNK
  3. IMPLANON [Suspect]
     Active Substance: ETONOGESTREL
     Dosage: IN TOTAL
     Dates: start: 2006, end: 20090618
  4. IMPLANON [Suspect]
     Active Substance: ETONOGESTREL
     Indication: PRODUCT USED FOR UNKNOWN INDICATION
     Dosage: IN TOTAL
     Route: 059
     Dates: start: 2003, end: 2006

REACTIONS (5)
  - Amenorrhoea [Unknown]
  - Stress [Unknown]
  - Abortion spontaneous [Unknown]
  - Pregnancy with implant contraceptive [Unknown]
  - Weight decreased [Unknown]

NARRATIVE: CASE EVENT DATE: 200905
